FAERS Safety Report 18218108 (Version 3)
Quarter: 2020Q3

REPORT INFORMATION
  Report Type: Spontaneous
  Country: JP (occurrence: JP)
  Receive Date: 20200901
  Receipt Date: 20200914
  Transmission Date: 20201103
  Serious: No
  Sender: FDA-Public Use
  Company Number: JP-JNJFOC-20200809202

PATIENT
  Age: 47 Year
  Sex: Female

DRUGS (5)
  1. DUROTEP [Suspect]
     Active Substance: FENTANYL
  2. DUROTEP [Suspect]
     Active Substance: FENTANYL
     Indication: PAIN
     Dosage: 50MCG/HR
     Route: 062
  3. ALLEGRA [Concomitant]
     Active Substance: FEXOFENADINE HYDROCHLORIDE
     Indication: PRODUCT USED FOR UNKNOWN INDICATION
     Dosage: DOSE UNKNOWN
     Route: 048
  4. MOHRUS [Concomitant]
     Active Substance: KETOPROFEN
     Indication: PRODUCT USED FOR UNKNOWN INDICATION
     Dosage: DOSE UNKNOWN
     Route: 061
  5. DUROTEP [Suspect]
     Active Substance: FENTANYL

REACTIONS (8)
  - Off label use [Unknown]
  - Product adhesion issue [Unknown]
  - Nausea [Unknown]
  - Treatment noncompliance [Unknown]
  - Therapeutic product effect increased [Unknown]
  - Wrong technique in product usage process [Unknown]
  - Application site dermatitis [Unknown]
  - Therapeutic response shortened [Unknown]
